FAERS Safety Report 4597007-0 (Version None)
Quarter: 2005Q1

REPORT INFORMATION
  Report Type: 
  Country: None (occurrence: None)
  Receive Date: 20050228
  Receipt Date: 20050210
  Transmission Date: 20050727
  Serious: Yes (Hospitalization)
  Sender: FDA-Public Use
  Company Number: 2005BI003180

PATIENT
  Age: 52 Year
  Sex: Male
  Weight: 89.8122 kg

DRUGS (1)
  1. AMEVIVE [Suspect]
     Indication: PSORIASIS
     Dates: start: 20041201, end: 20050127

REACTIONS (2)
  - SKIN INFECTION [None]
  - STREPTOCOCCAL INFECTION [None]
